FAERS Safety Report 22845158 (Version 2)
Quarter: 2023Q4

REPORT INFORMATION
  Report Type: Spontaneous
  Country: PT (occurrence: PT)
  Receive Date: 20230821
  Receipt Date: 20231103
  Transmission Date: 20240110
  Serious: Yes (Other)
  Sender: FDA-Public Use
  Company Number: None

PATIENT
  Age: 74 Year
  Sex: Male
  Weight: 92.7 kg

DRUGS (4)
  1. OBINUTUZUMAB [Suspect]
     Active Substance: OBINUTUZUMAB
     Indication: Chronic lymphocytic leukaemia
     Dosage: (FORM STRENGTH: 25 MG/ML) 100 MG (1ST DAY OF ADMINISTRATION) [TOMORROW 900 MG]
     Route: 065
     Dates: start: 20230803, end: 20230803
  2. ORADEXON [Concomitant]
     Active Substance: DEXAMETHASONE
     Indication: Prophylaxis
     Dates: start: 20230803, end: 20230803
  3. CLEMASTINA [Concomitant]
     Indication: Prophylaxis
     Dates: start: 20230803, end: 20230803
  4. LEUKERAN [Concomitant]
     Active Substance: CHLORAMBUCIL
     Indication: Chronic lymphocytic leukaemia
     Dosage: EM D1 DO CICLO
     Dates: start: 20230803, end: 20230803

REACTIONS (3)
  - Pyrexia [Recovered/Resolved]
  - Chills [Recovered/Resolved]
  - Cyanosis [Recovered/Resolved]

NARRATIVE: CASE EVENT DATE: 20230803
